FAERS Safety Report 7096607-6 (Version None)
Quarter: 2010Q4

REPORT INFORMATION
  Report Type: 
  Country: None (occurrence: None)
  Receive Date: 20101111
  Receipt Date: 20101027
  Transmission Date: 20110411
  Serious: Yes (Other)
  Sender: FDA-Public Use
  Company Number: US-MERCK-1010USA03281

PATIENT
  Age: 58 Year
  Sex: Male

DRUGS (14)
  1. VYTORIN [Suspect]
     Indication: BLOOD CHOLESTEROL INCREASED
     Route: 048
     Dates: start: 20050101, end: 20091101
  2. CELEBREX [Suspect]
     Indication: INTERVERTEBRAL DISC PROTRUSION
     Route: 048
     Dates: start: 20020101
  3. CELEBREX [Suspect]
     Route: 048
     Dates: start: 20020101
  4. METFORMIN [Concomitant]
     Indication: DIABETES MELLITUS
     Route: 065
     Dates: start: 20000101, end: 20091101
  5. ASCORBIC ACID [Concomitant]
     Route: 065
  6. ERGOCALCIFEROL [Concomitant]
     Route: 065
  7. FOLIC ACID [Concomitant]
     Route: 065
  8. NIACINAMIDE [Concomitant]
     Route: 065
  9. PANTHENOL [Concomitant]
     Route: 065
  10. VITAMIN A [Concomitant]
     Route: 065
  11. RIBOFLAVIN [Concomitant]
     Route: 065
  12. THIAMINE HYDROCHLORIDE [Concomitant]
     Route: 065
  13. NIACIN [Concomitant]
     Route: 065
  14. ASPIRIN [Concomitant]
     Route: 065

REACTIONS (3)
  - COLITIS ULCERATIVE [None]
  - CONSTIPATION [None]
  - IRRITABLE BOWEL SYNDROME [None]
